FAERS Safety Report 5461003-1 (Version None)
Quarter: 2007Q3

REPORT INFORMATION
  Report Type: 
  Country: None (occurrence: None)
  Receive Date: 20070822
  Receipt Date: 20070416
  Transmission Date: 20080115
  Serious: Yes (Other)
  Sender: FDA-Public Use
  Company Number: 2007030303

PATIENT
  Age: 59 Year
  Sex: Male
  Weight: 77.27 kg

DRUGS (6)
  1. NORVASC [Suspect]
     Indication: BLOOD PRESSURE
     Dosage: 10 MG (1 IN 1 D), ORAL
     Route: 048
  2. CHANTIX [Suspect]
     Indication: SMOKING CESSATION THERAPY
     Dosage: 0.5 MG (0.5 MG, 1 IN 1 D), ORAL; 1 MG (0.5 MG, 2 IN 1 D), ORAL; 2 MG (1 MG, 2 IN 1 D), ORAL
     Route: 048
     Dates: start: 20070404, end: 20070406
  3. CHANTIX [Suspect]
     Indication: SMOKING CESSATION THERAPY
     Dosage: 0.5 MG (0.5 MG, 1 IN 1 D), ORAL; 1 MG (0.5 MG, 2 IN 1 D), ORAL; 2 MG (1 MG, 2 IN 1 D), ORAL
     Route: 048
     Dates: start: 20070407, end: 20070410
  4. CHANTIX [Suspect]
     Indication: SMOKING CESSATION THERAPY
     Dosage: 0.5 MG (0.5 MG, 1 IN 1 D), ORAL; 1 MG (0.5 MG, 2 IN 1 D), ORAL; 2 MG (1 MG, 2 IN 1 D), ORAL
     Route: 048
     Dates: start: 20070411
  5. BENICAR [Suspect]
     Indication: BLOOD PRESSURE
     Dosage: 20 MG (20 MG, 1 IN 1 D), ORAL
     Route: 048
  6. LIPITOR [Concomitant]

REACTIONS (6)
  - BONE PAIN [None]
  - DISCOMFORT [None]
  - DRY MOUTH [None]
  - INSOMNIA [None]
  - PRODUCTIVE COUGH [None]
  - WHEEZING [None]
